FAERS Safety Report 5130186-5 (Version None)
Quarter: 2006Q4

REPORT INFORMATION
  Report Type: 
  Country: None (occurrence: None)
  Receive Date: 20061013
  Receipt Date: 20060926
  Transmission Date: 20070319
  Serious: Yes (Death)
  Sender: FDA-Public Use
  Company Number: US200607003586

PATIENT
  Age: 39 Year
  Sex: Female
  Weight: 40.8 kg

DRUGS (2)
  1. CYMBALTA [Suspect]
     Indication: DEPRESSION
  2. CALCIUM (CALCIUM) [Concomitant]

REACTIONS (1)
  - COMPLETED SUICIDE [None]
